FAERS Safety Report 6581864-2 (Version None)
Quarter: 2010Q1

REPORT INFORMATION
  Report Type: 
  Country: None (occurrence: None)
  Receive Date: 20100215
  Receipt Date: 20100115
  Transmission Date: 20100710
  Serious: No
  Sender: FDA-Public Use
  Company Number: US-BAYER-201010876BCC

PATIENT
  Age: 53 Year
  Sex: Male
  Weight: 73 kg

DRUGS (3)
  1. ALEVE (CAPLET) [Suspect]
     Indication: POLYARTHRITIS
     Route: 048
  2. IBUPROFEN [Concomitant]
     Route: 065
  3. MOTRIN [Concomitant]
     Route: 065

REACTIONS (1)
  - ARTHRITIS [None]
